FAERS Safety Report 8583947-4 (Version None)
Quarter: 2012Q3

REPORT INFORMATION
  Report Type: 
  Country: None (occurrence: None)
  Receive Date: 20120810
  Receipt Date: 20120805
  Transmission Date: 20120928
  Serious: Yes (Hospitalization)
  Sender: FDA-Public Use
  Company Number: JP-009507513-1111USA01707

PATIENT

DRUGS (9)
  1. ZOLPIDEM [Concomitant]
     Indication: INSOMNIA
     Dosage: 10 MG, PRN
     Route: 048
     Dates: start: 20110803, end: 20120215
  2. REBETOL [Suspect]
     Indication: HEPATITIS C
     Dosage: 600 MG, QD
     Route: 048
     Dates: start: 20110902
  3. REBAMIPIDE OD [Concomitant]
     Indication: GASTRITIS PROPHYLAXIS
     Dosage: 100 MG, PRN
     Route: 048
     Dates: start: 20110902
  4. ESTAZOLAM [Concomitant]
     Indication: INSOMNIA
     Dosage: 4 MG, PRN
     Route: 048
     Dates: start: 20110803, end: 20120708
  5. PLACEBO [Suspect]
     Indication: HEPATITIS C
     Route: 048
     Dates: start: 20110902
  6. BASEN OD [Concomitant]
     Indication: DIABETES MELLITUS
     Dosage: 0.2 MG, TID
     Route: 048
     Dates: start: 20110803, end: 20110915
  7. PEG-INTRON [Suspect]
     Indication: HEPATITIS C
     Dosage: 80 MICROGRAM, QW
     Route: 058
     Dates: start: 20110902
  8. KINEDAK [Concomitant]
     Indication: PROPHYLAXIS
     Dosage: 50 MG, TID
     Route: 048
     Dates: start: 20110803
  9. MAGLAX (MAGNESIUM OXIDE) [Concomitant]
     Indication: CONSTIPATION
     Dosage: 1500 MG, PRN
     Route: 048
     Dates: start: 20110803

REACTIONS (1)
  - FATIGUE [None]
